FAERS Safety Report 6422339-0 (Version None)
Quarter: 2009Q4

REPORT INFORMATION
  Report Type: 
  Country: None (occurrence: None)
  Receive Date: 20091030
  Receipt Date: 20091021
  Transmission Date: 20100525
  Serious: Yes (Hospitalization)
  Sender: FDA-Public Use
  Company Number: FR-WYE-H11852609

PATIENT
  Sex: Female

DRUGS (7)
  1. CORDARONE [Suspect]
     Indication: ATRIAL FIBRILLATION
     Dosage: DOSE UNKNOWN
     Route: 048
     Dates: start: 20070101, end: 20080601
  2. EZETIMIBE [Concomitant]
     Route: 048
  3. SPIRIVA [Concomitant]
     Dosage: DOSE UNKNOWN
     Route: 055
  4. PREVISCAN [Concomitant]
     Dosage: DOSE UNKNOWN
     Route: 048
  5. SERETIDE [Concomitant]
     Dosage: DOSE UNKNOWN
     Route: 055
  6. TAHOR [Concomitant]
     Route: 048
  7. LASILIX [Concomitant]
     Route: 048

REACTIONS (3)
  - ACUTE PULMONARY OEDEMA [None]
  - HYPERTHYROIDISM [None]
  - TACHYARRHYTHMIA [None]
